FAERS Safety Report 5985933-7 (Version None)
Quarter: 2008Q4

REPORT INFORMATION
  Report Type: 
  Country: None (occurrence: None)
  Receive Date: 20081205
  Receipt Date: 20081205
  Transmission Date: 20090506
  Serious: Yes (Hospitalization)
  Sender: FDA-Public Use
  Company Number: None

PATIENT
  Age: 28 Year
  Sex: Female

DRUGS (1)
  1. FOSCARNET [Suspect]
     Dates: start: 20081126, end: 20081129

REACTIONS (1)
  - HYPOCALCAEMIA [None]
